FAERS Safety Report 20470076 (Version 3)
Quarter: 2022Q2

REPORT INFORMATION
  Report Type: Report from Study
  Country: JP (occurrence: None)
  Receive Date: 20220214
  Receipt Date: 20220606
  Transmission Date: 20220720
  Serious: Yes (Death, Hospitalization, Disabling)
  Sender: FDA-Public Use
  Company Number: JP-Merck Healthcare KGaA-9246959

PATIENT
  Age: 58 Year
  Sex: Male
  Weight: 75 kg

DRUGS (3)
  1. BAVENCIO [Suspect]
     Active Substance: AVELUMAB
     Indication: Transitional cell carcinoma
     Dosage: DOSING RATE: 288.5 ML/HR.
     Route: 041
     Dates: start: 20210511, end: 20210614
  2. ACETAMINOPHEN [Concomitant]
     Active Substance: ACETAMINOPHEN
     Indication: Premedication
     Route: 041
     Dates: start: 20210511, end: 20210614
  3. DIPHENHYDRAMINE [Concomitant]
     Active Substance: DIPHENHYDRAMINE
     Indication: Premedication
     Route: 048
     Dates: start: 20210511, end: 20210614

REACTIONS (4)
  - Rhabdomyolysis [Recovering/Resolving]
  - Myositis [Recovering/Resolving]
  - Disease progression [Fatal]
  - Lymphoedema [Not Recovered/Not Resolved]

NARRATIVE: CASE EVENT DATE: 20210703
